FAERS Safety Report 8934201 (Version 2)
Quarter: 2015Q2

REPORT INFORMATION
  Report Type: Spontaneous
  Country: US (occurrence: US)
  Receive Date: 20121129
  Receipt Date: 20150527
  Transmission Date: 20150821
  Serious: Yes (Hospitalization, Congenital Anomaly, Other)
  Sender: FDA-Public Use
  Company Number: US-ELI_LILLY_AND_COMPANY-US201211005934

PATIENT

DRUGS (5)
  1. PROZAC [Suspect]
     Active Substance: FLUOXETINE HYDROCHLORIDE
     Indication: DEPRESSION
     Dosage: 1 DF, UNKNOWN
     Route: 064
  2. LABETALOL [Concomitant]
     Active Substance: LABETALOL\LABETALOL HYDROCHLORIDE
     Route: 064
  3. PHENERGAN [Concomitant]
     Active Substance: PROMETHAZINE HYDROCHLORIDE
     Route: 064
  4. TRILEPTAL [Concomitant]
     Active Substance: OXCARBAZEPINE
     Route: 064
  5. CITALOPRAM [Concomitant]
     Active Substance: CITALOPRAM HYDROBROMIDE
     Route: 064

REACTIONS (9)
  - Lung disorder [Unknown]
  - Eye laser surgery [Unknown]
  - Foetal exposure during pregnancy [Recovered/Resolved]
  - Brain injury [Unknown]
  - Haemorrhage intracranial [Unknown]
  - Congenital heart valve disorder [Unknown]
  - Premature baby [Unknown]
  - Hypertension neonatal [Unknown]
  - Foetal hypokinesia [Recovered/Resolved]
